FAERS Safety Report 8739922 (Version 2)
Quarter: 2013Q4

REPORT INFORMATION
  Report Type: Spontaneous
  Country: DE (occurrence: DE)
  Receive Date: 20120823
  Receipt Date: 20131105
  Transmission Date: 20140711
  Serious: Yes (Hospitalization)
  Sender: FDA-Public Use
  Company Number: DE-009507513-1208DEU007592

PATIENT
  Age: 80 Year
  Sex: Female

DRUGS (1)
  1. FOSAVANCE [Suspect]
     Indication: OSTEOPOROSIS POSTMENOPAUSAL
     Dosage: 700MG/5600IU, QW
     Route: 048
     Dates: start: 201108

REACTIONS (1)
  - Spinal fracture [Unknown]
